FAERS Safety Report 10652856 (Version 2)
Quarter: 2014Q4

REPORT INFORMATION
  Report Type: Report from Study
  Country: JP (occurrence: JP)
  Receive Date: 20141215
  Receipt Date: 20141215
  Transmission Date: 20150529
  Serious: Yes (Death, Hospitalization)
  Sender: FDA-Public Use
  Company Number: JP-BAYER-2013-118252

PATIENT
  Age: 77 Year
  Sex: Male
  Weight: 67 kg

DRUGS (16)
  1. XARELTO [Suspect]
     Active Substance: RIVAROXABAN
     Indication: CEREBROVASCULAR ACCIDENT PROPHYLAXIS
     Dosage: 10 MG, QD
     Route: 048
     Dates: start: 20130815, end: 20130926
  2. NESINA [Concomitant]
     Active Substance: ALOGLIPTIN BENZOATE
     Dosage: DAILY DOSE 25 MG
     Route: 048
     Dates: end: 20130905
  3. LIDUC M [Concomitant]
     Active Substance: PRAVASTATIN SODIUM
     Dosage: DAILY DOSE 10 MG
     Route: 048
     Dates: start: 20130906, end: 20130926
  4. TIAPRIM [Concomitant]
     Indication: AGGRESSION
     Dosage: DAILY DOSE 50 MG
     Route: 048
     Dates: start: 20130918, end: 20130926
  5. MYONAL [Concomitant]
     Active Substance: EPERISONE HYDROCHLORIDE
     Dosage: DAILY DOSE 50 MG
     Route: 048
     Dates: start: 20130913, end: 20130926
  6. XARELTO [Interacting]
     Active Substance: RIVAROXABAN
     Indication: THROMBOSIS PROPHYLAXIS
  7. AMLODIPINE BESILATE [Concomitant]
     Active Substance: AMLODIPINE BESYLATE
     Dosage: DAILY DOSE 5 MG
     Route: 048
     Dates: start: 20130906, end: 20130919
  8. MYONAL [Concomitant]
     Active Substance: EPERISONE HYDROCHLORIDE
     Dosage: 150 MG, UNK
  9. REBAMIPIDE [Concomitant]
     Active Substance: REBAMIPIDE
     Dosage: DAILY DOSE 100 MG
     Route: 048
     Dates: start: 20130913, end: 20130926
  10. BAYASPIRIN [Interacting]
     Active Substance: ASPIRIN
     Dosage: DAILY DOSE 100 MG
     Route: 048
     Dates: end: 20130912
  11. TAKEPRON [Concomitant]
     Active Substance: LANSOPRAZOLE
     Indication: PROPHYLAXIS
     Dosage: 15 MG, DAILY DOSE
     Route: 048
     Dates: start: 20130813, end: 20130820
  12. MICARDIS [Concomitant]
     Active Substance: TELMISARTAN
     Dosage: DAILY DOSE 40 MG
     Route: 048
     Dates: start: 20130906, end: 20130926
  13. XARELTO [Interacting]
     Active Substance: RIVAROXABAN
     Indication: ATRIAL FIBRILLATION
  14. PROMAC [POLAPREZINC] [Concomitant]
     Active Substance: POLAPREZINC
     Indication: PROPHYLAXIS
     Dosage: 75 MG, DAILY DOSE
     Route: 048
     Dates: start: 20130813, end: 20130820
  15. TRAZENTA [Concomitant]
     Active Substance: LINAGLIPTIN
     Dosage: DAILY DOSE 5 MG
     Route: 048
     Dates: start: 20130906, end: 20130926
  16. LOXOPROFEN [Concomitant]
     Active Substance: LOXOPROFEN
     Dosage: DAILY DOSE 60 MG
     Route: 048
     Dates: start: 20130913, end: 20130926

REACTIONS (4)
  - Retroperitoneal haemorrhage [Fatal]
  - Drug interaction [None]
  - Aggression [Not Recovered/Not Resolved]
  - Haemorrhagic infarction [Not Recovered/Not Resolved]

NARRATIVE: CASE EVENT DATE: 20130912
